FAERS Safety Report 24001205 (Version 1)
Quarter: 2024Q2

REPORT INFORMATION
  Report Type: Report from Study
  Country: CA (occurrence: None)
  Receive Date: 20240621
  Receipt Date: 20240621
  Transmission Date: 20240716
  Serious: Yes (Other)
  Sender: FDA-Public Use
  Company Number: 2024A144051

PATIENT
  Sex: Male

DRUGS (4)
  1. FASENRA [Suspect]
     Active Substance: BENRALIZUMAB
     Indication: Asthma
     Route: 058
     Dates: start: 20230909
  2. VENTOLIN [Concomitant]
     Active Substance: ALBUTEROL SULFATE
     Dosage: 100 MCG 2 PUFFS BID A QID PRN
  3. TRELEGY ELLIPTA [Concomitant]
     Active Substance: FLUTICASONE FUROATE\UMECLIDINIUM BROMIDE\VILANTEROL TRIFENATATE
     Dosage: STATUS: ONGOING, DOSE: 62.5/25/100 1 INH DIE
  4. ALVESCO [Concomitant]
     Active Substance: CICLESONIDE
     Dosage: ONGOING, DOSE: 200MCG 2PUFF BID

REACTIONS (3)
  - Pulmonary function test decreased [Unknown]
  - Breast cancer [Unknown]
  - Chronic obstructive pulmonary disease [Unknown]
